FAERS Safety Report 21464300 (Version 8)
Quarter: 2023Q4

REPORT INFORMATION
  Report Type: Report from Study
  Country: CN (occurrence: None)
  Receive Date: 20221017
  Receipt Date: 20231003
  Transmission Date: 20240110
  Serious: Yes (Death, Hospitalization)
  Sender: FDA-Public Use
  Company Number: CN-ROCHE-3197915

PATIENT
  Age: 64 Year
  Sex: Male

DRUGS (34)
  1. ATEZOLIZUMAB [Suspect]
     Active Substance: ATEZOLIZUMAB
     Indication: Hepatocellular carcinoma
     Dosage: SUBSEQUENT DOSES: 26/MAY/2022, 16/JUN/2022, 08/JUL/2022, 31/AUG/2022
     Route: 041
     Dates: start: 20220505, end: 20220505
  2. BEVACIZUMAB [Suspect]
     Active Substance: BEVACIZUMAB
     Indication: Hepatocellular carcinoma
     Dosage: SUBSEQUENT DOSES: 26/MAY/2022, 16/JUN/2022, 31/AUG/2022
     Route: 041
     Dates: start: 20220505
  3. FELODIPINE [Concomitant]
     Active Substance: FELODIPINE
     Indication: Hypertension
     Dates: start: 20220526
  4. POTASSIUM CHLORIDE [Concomitant]
     Active Substance: POTASSIUM CHLORIDE
     Dates: start: 20220802, end: 20220804
  5. POTASSIUM CHLORIDE [Concomitant]
     Active Substance: POTASSIUM CHLORIDE
     Dates: start: 20220805, end: 20220806
  6. POTASSIUM CHLORIDE [Concomitant]
     Active Substance: POTASSIUM CHLORIDE
     Dates: start: 20220809, end: 20220812
  7. POTASSIUM CHLORIDE [Concomitant]
     Active Substance: POTASSIUM CHLORIDE
     Dates: start: 20220809, end: 20220820
  8. INSULIN HUMAN [Concomitant]
     Active Substance: INSULIN HUMAN
     Indication: Diabetes mellitus
     Dates: start: 20220803, end: 20220820
  9. INSULIN HUMAN [Concomitant]
     Active Substance: INSULIN HUMAN
     Dates: start: 20220804, end: 20220804
  10. INSULIN HUMAN [Concomitant]
     Active Substance: INSULIN HUMAN
     Dates: start: 20220807, end: 20220807
  11. INSULIN HUMAN [Concomitant]
     Active Substance: INSULIN HUMAN
     Dosage: FREQUENCY: OTHER
     Dates: start: 20220807, end: 20220807
  12. INSULIN HUMAN [Concomitant]
     Active Substance: INSULIN HUMAN
     Dates: start: 20220808, end: 20220808
  13. ENTECAVIR [Concomitant]
     Active Substance: ENTECAVIR
     Indication: Hepatitis B
     Dates: start: 20220427
  14. NIFEDIPINE [Concomitant]
     Active Substance: NIFEDIPINE
     Indication: Hypertension
     Dates: start: 20220805, end: 20220805
  15. NIFEDIPINE [Concomitant]
     Active Substance: NIFEDIPINE
     Dates: start: 20220809, end: 20220810
  16. TORSEMIDE [Concomitant]
     Active Substance: TORSEMIDE
     Dates: start: 20220804, end: 20220811
  17. PENTAZOCINE [Concomitant]
     Active Substance: PENTAZOCINE
     Indication: Procedural pain
     Dates: start: 20220804, end: 20220805
  18. HAEMOCOAGULASE AGKISTRODON [Concomitant]
     Indication: Haemorrhage prophylaxis
     Dates: start: 20220803, end: 20220804
  19. DEXAMETHASONE SODIUM PHOSPHATE [Concomitant]
     Active Substance: DEXAMETHASONE SODIUM PHOSPHATE
     Indication: Allergy prophylaxis
     Dates: start: 20220807, end: 20220807
  20. MAGNESIUM ISOGLYCYRRHIZINATE [Concomitant]
     Active Substance: MAGNESIUM ISOGLYCYRRHIZINATE
     Indication: Hepatic function abnormal
     Dates: start: 20220803, end: 20220804
  21. HEPATOCYTE GROWTH PROMOTING FACTORS [Concomitant]
     Indication: Hepatic function abnormal
     Dates: start: 20220803, end: 20220804
  22. GLUTATHIONE [Concomitant]
     Active Substance: GLUTATHIONE
     Indication: Hepatic function abnormal
     Dates: start: 20220803, end: 20220804
  23. CALCIUM CHLORIDE\POTASSIUM CHLORIDE\SODIUM CHLORIDE\SODIUM LACTATE [Concomitant]
     Active Substance: CALCIUM CHLORIDE\POTASSIUM CHLORIDE\SODIUM CHLORIDE\SODIUM LACTATE
  24. BICYCLOL [Concomitant]
     Active Substance: BICYCLOL
  25. INDAPAMIDE [Concomitant]
     Active Substance: INDAPAMIDE
  26. FUROSEMIDE [Concomitant]
     Active Substance: FUROSEMIDE
  27. CEFOPERAZONE SODIUM\SULBACTAM SODIUM [Concomitant]
     Active Substance: CEFOPERAZONE SODIUM\SULBACTAM SODIUM
  28. OMEPRAZOLE SODIUM [Concomitant]
     Active Substance: OMEPRAZOLE SODIUM
  29. HYDROCORTISONE SODIUM SUCCINATE [Concomitant]
     Active Substance: HYDROCORTISONE SODIUM SUCCINATE
  30. INSULIN GLARGINE [Concomitant]
     Active Substance: INSULIN GLARGINE
  31. PROMETHAZINE HYDROCHLORIDE [Concomitant]
     Active Substance: PROMETHAZINE HYDROCHLORIDE
  32. SPIRONOLACTONE [Concomitant]
     Active Substance: SPIRONOLACTONE
  33. SODIUM POTASSIUM MAGNESIUM CALCIUM AND GLUCOSE [Concomitant]
  34. INSULIN ASPART [Concomitant]
     Active Substance: INSULIN ASPART

REACTIONS (26)
  - Ascites [Recovered/Resolved]
  - Blood bilirubin increased [Fatal]
  - Platelet count decreased [Not Recovered/Not Resolved]
  - Neutrophil count increased [Recovered/Resolved]
  - Abdominal pain upper [Recovered/Resolved]
  - Blood bilirubin increased [Recovered/Resolved]
  - Pleural effusion [Recovered/Resolved]
  - Aspartate aminotransferase increased [Not Recovered/Not Resolved]
  - Prothrombin level increased [Not Recovered/Not Resolved]
  - Pyrexia [Recovered/Resolved]
  - Abdominal distension [Recovered/Resolved]
  - Chills [Recovered/Resolved]
  - Blood creatinine increased [Recovered/Resolved]
  - Productive cough [Recovered/Resolved]
  - Anaemia [Not Recovered/Not Resolved]
  - Asthenia [Not Recovered/Not Resolved]
  - Procedural pain [Not Recovered/Not Resolved]
  - C-reactive protein increased [Not Recovered/Not Resolved]
  - Leukocytosis [Recovered/Resolved]
  - Constipation [Recovered/Resolved]
  - Blood corticotrophin increased [Recovered/Resolved]
  - Biliary tract infection [Not Recovered/Not Resolved]
  - Biliary fistula [Not Recovered/Not Resolved]
  - Proteinuria [Not Recovered/Not Resolved]
  - Hypoalbuminaemia [Not Recovered/Not Resolved]
  - Hypokalaemia [Recovered/Resolved]

NARRATIVE: CASE EVENT DATE: 20220526
